FAERS Safety Report 5974235-0 (Version None)
Quarter: 2008Q4

REPORT INFORMATION
  Report Type: 
  Country: None (occurrence: None)
  Receive Date: 20081128
  Receipt Date: 20081120
  Transmission Date: 20090506
  Serious: Yes (Congenital Anomaly)
  Sender: FDA-Public Use
  Company Number: GXKR2008GB11068

PATIENT

DRUGS (2)
  1. VENLAFAXINE HCL [Suspect]
     Dosage: MATERNAL DOSE:  150 MG DAILY, TRANSPLACENTAL
     Route: 064
  2. IRON (IRON) [Concomitant]

REACTIONS (3)
  - CONGENITAL ANOMALY [None]
  - DRUG EXPOSURE DURING PREGNANCY [None]
  - SUPRAVENTRICULAR TACHYCARDIA [None]
